FAERS Safety Report 7605546-0 (Version None)
Quarter: 2011Q3

REPORT INFORMATION
  Report Type: 
  Country: None (occurrence: None)
  Receive Date: 20110705
  Receipt Date: 20110617
  Transmission Date: 20111222
  Serious: Yes (Hospitalization, Other)
  Sender: FDA-Public Use
  Company Number: 2011MA007717

PATIENT
  Age: 73 Year
  Sex: Female

DRUGS (1)
  1. METFORMIN HYDROCHLORIDE TABLETS, 850 MG (PUREPAC) (METFORMIN HYDROCHLO [Suspect]
     Indication: DIABETES MELLITUS
     Dosage: 850 MG; TID;

REACTIONS (14)
  - INTERNATIONAL NORMALISED RATIO INCREASED [None]
  - ACTIVATED PARTIAL THROMBOPLASTIN TIME PROLONGED [None]
  - RENAL FAILURE [None]
  - ARRHYTHMIA [None]
  - HEPATOTOXICITY [None]
  - POLYDIPSIA [None]
  - LACTIC ACIDOSIS [None]
  - ANAEMIA [None]
  - NEUTROPHILIA [None]
  - DEHYDRATION [None]
  - THROMBOCYTOPENIA [None]
  - CARDIAC FAILURE [None]
  - LEUKOCYTOSIS [None]
  - PLEURAL EFFUSION [None]
